FAERS Safety Report 9722004 (Version 1)
Quarter: 2013Q4

REPORT INFORMATION
  Report Type: Spontaneous
  Country: US (occurrence: US)
  Receive Date: 20131202
  Receipt Date: 20131202
  Transmission Date: 20140711
  Serious: No
  Sender: FDA-Public Use
  Company Number: US-BIOGENIDEC-2013BI064572

PATIENT
  Age: 43 Year
  Sex: Male
  Weight: 99 kg

DRUGS (6)
  1. TECFIDERA [Suspect]
     Indication: MULTIPLE SCLEROSIS
     Route: 048
     Dates: start: 201305
  2. VITAMIN D [Concomitant]
  3. LOSARTAN POT [Concomitant]
  4. METOPROL TAR [Concomitant]
  5. AMLODIPINE [Concomitant]
  6. KLONOPIN [Concomitant]

REACTIONS (6)
  - Abdominal distension [Unknown]
  - Muscle spasms [Unknown]
  - Chills [Unknown]
  - Flushing [Unknown]
  - Abdominal pain upper [Not Recovered/Not Resolved]
  - Diarrhoea [Unknown]
